FAERS Safety Report 8620562-8 (Version None)
Quarter: 2012Q3

REPORT INFORMATION
  Report Type: 
  Country: None (occurrence: None)
  Receive Date: 20120824
  Receipt Date: 20120810
  Transmission Date: 20120928
  Serious: Yes (Death, Hospitalization)
  Sender: FDA-Public Use
  Company Number: JP-ACTELION-A-CH2011-56207

PATIENT
  Age: 25 Year
  Sex: Male
  Weight: 45.5 kg

DRUGS (38)
  1. MIGLUSTAT [Suspect]
     Dosage: 100 MG, TID
     Route: 048
     Dates: start: 20111024, end: 20111030
  2. MIGLUSTAT [Suspect]
     Dosage: 400 MG, QD
     Route: 048
     Dates: start: 20111031, end: 20111222
  3. DANTRIUM [Concomitant]
  4. OMEGACIN [Concomitant]
  5. BROMHEXINE HYDROCHLORIDE [Concomitant]
  6. MIGLUSTAT [Suspect]
     Dosage: 450 MG, TID
     Route: 048
     Dates: start: 20110415, end: 20110419
  7. MIGLUSTAT [Suspect]
     Dosage: 500 MG, QD
     Route: 048
     Dates: start: 20111223, end: 20120126
  8. TEGRETOL [Concomitant]
  9. MUCODYNE [Concomitant]
  10. NICHOLIN-H [Concomitant]
  11. MIGLUSTAT [Suspect]
     Dosage: 500 MG, QD
     Route: 048
     Dates: start: 20110420, end: 20110425
  12. MIGLUSTAT [Suspect]
     Dosage: 400 MG, QD
     Route: 048
     Dates: start: 20110609, end: 20110909
  13. MIGLUSTAT [Suspect]
     Dosage: 100 MG, TID
     Route: 048
     Dates: start: 20120301, end: 20120303
  14. PHENYTOIN [Concomitant]
  15. PARLODEL [Concomitant]
  16. LOPERAMIDE HYDROCHLORIDE [Concomitant]
  17. CYANOCOBALAMIN [Concomitant]
  18. ARTANE [Concomitant]
  19. BOSMIN [Concomitant]
  20. GLYCERIN [Concomitant]
  21. MIGLUSTAT [Suspect]
     Dosage: 200 MG, TID
     Route: 048
     Dates: start: 20110426, end: 20110512
  22. MIYA BM [Concomitant]
  23. MIGLUSTAT [Suspect]
     Dosage: 100 MG, TID
     Route: 048
     Dates: start: 20110210, end: 20110406
  24. MIGLUSTAT [Suspect]
     Dosage: 400 MG, QD
     Route: 048
     Dates: start: 20110407, end: 20110414
  25. MIGLUSTAT [Suspect]
     Dosage: 400 MG, QD
     Route: 048
     Dates: start: 20110513, end: 20110523
  26. LAMICTAL [Concomitant]
  27. CLINDAMYCIN PHOSPHATE [Concomitant]
  28. SOLU-MEDROL [Concomitant]
  29. MIGLUSTAT [Suspect]
     Indication: NIEMANN-PICK DISEASE
     Dosage: 150 MG, TID
     Route: 048
     Dates: start: 20120304, end: 20120606
  30. BIO-THREE [Concomitant]
  31. LEVOTHYROXINE SODIUM [Concomitant]
  32. NEOPHYLLIN [Concomitant]
  33. MIGLUSTAT [Suspect]
     Dosage: 150 MG, BID
     Route: 048
     Dates: start: 20110524, end: 20110608
  34. MIGLUSTAT [Suspect]
     Dosage: 500 MG, QD
     Route: 048
     Dates: start: 20110910, end: 20111013
  35. MIGLUSTAT [Suspect]
     Dosage: 150 MG, TID
     Route: 048
     Dates: start: 20120127, end: 20120214
  36. CLARITH [Concomitant]
  37. ANETOCAINE [Concomitant]
  38. LACTEC [Concomitant]

REACTIONS (9)
  - INTERSTITIAL LUNG DISEASE [None]
  - PYREXIA [None]
  - RHINORRHOEA [None]
  - COUGH [None]
  - PNEUMONIA [None]
  - INCREASED UPPER AIRWAY SECRETION [None]
  - CONDITION AGGRAVATED [None]
  - RESPIRATORY FAILURE [None]
  - NIEMANN-PICK DISEASE [None]
